FAERS Safety Report 4943052-2 (Version None)
Quarter: 2006Q1

REPORT INFORMATION
  Report Type: 
  Country: None (occurrence: None)
  Receive Date: 20060309
  Receipt Date: 20060221
  Transmission Date: 20060701
  Serious: Yes (Other)
  Sender: FDA-Public Use
  Company Number: 2006-BP-02128BRO

PATIENT
  Age: 61 Year
  Sex: Female

DRUGS (1)
  1. METOCLOPRAMIDE [Suspect]
     Indication: VOMITING
     Dosage: 10 MG X 1 DOSE (NR); IV
     Route: 042

REACTIONS (6)
  - ANOREXIA [None]
  - CONDITION AGGRAVATED [None]
  - HYPERTENSIVE CRISIS [None]
  - PALPITATIONS [None]
  - PHAEOCHROMOCYTOMA [None]
  - SINUS TACHYCARDIA [None]
